FAERS Safety Report 17074228 (Version 1)
Quarter: 2019Q4

REPORT INFORMATION
  Report Type: Spontaneous
  Country: US (occurrence: US)
  Receive Date: 20191028
  Receipt Date: 20191028
  Transmission Date: 20200122
  Serious: Yes (Hospitalization)
  Sender: FDA-Public Use
  Company Number: None

PATIENT
  Sex: Female

DRUGS (9)
  1. DOXYCYCL HYC [Concomitant]
  2. FINACEA [Concomitant]
     Active Substance: AZELAIC ACID
  3. LASIX [Concomitant]
     Active Substance: FUROSEMIDE
  4. COUMADIN [Concomitant]
     Active Substance: WARFARIN SODIUM
  5. POTASSIUM [Concomitant]
     Active Substance: POTASSIUM
  6. AMBRISENTAN 10 MG ACTAVIS PHARMA [Suspect]
     Active Substance: AMBRISENTAN
     Indication: PULMONARY ARTERIAL HYPERTENSION
     Route: 048
     Dates: start: 20190911
  7. CLEMASTINE [Concomitant]
     Active Substance: CLEMASTINE
  8. ACZONE [Concomitant]
     Active Substance: DAPSONE
  9. ADCIRCA [Concomitant]
     Active Substance: TADALAFIL

REACTIONS (1)
  - Product substitution issue [None]
